FAERS Safety Report 5163117-2 (Version None)
Quarter: 2006Q4

REPORT INFORMATION
  Report Type: 
  Country: None (occurrence: None)
  Receive Date: 20061201
  Receipt Date: 20061023
  Transmission Date: 20070319
  Serious: Yes (Life-Threatening, Hospitalization)
  Sender: FDA-Public Use
  Company Number: DE-ABBOTT-06P-062-0347926-00

PATIENT
  Sex: Female
  Weight: 93 kg

DRUGS (5)
  1. HUMIRA [Suspect]
     Indication: PSORIATIC ARTHROPATHY
     Route: 058
     Dates: start: 20060918, end: 20061016
  2. KATADOLON [Suspect]
     Indication: PSORIATIC ARTHROPATHY
     Route: 048
     Dates: start: 20060901, end: 20061023
  3. MOLSIDOMINE [Concomitant]
     Indication: HYPERTENSION
     Route: 048
     Dates: end: 20061023
  4. LEVOCETIRIZINE DIHYDROCHLORIDE [Concomitant]
     Indication: PRURITUS
     Route: 048
     Dates: end: 20061023
  5. GLUCOCORTICOIDS [Concomitant]
     Indication: PSORIATIC ARTHROPATHY
     Route: 048
     Dates: start: 20060101, end: 20061023

REACTIONS (2)
  - ANOREXIA [None]
  - HEPATOTOXICITY [None]
